FAERS Safety Report 5515706-0 (Version None)
Quarter: 2007Q4

REPORT INFORMATION
  Report Type: 
  Country: None (occurrence: None)
  Receive Date: 20071113
  Receipt Date: 20071102
  Transmission Date: 20080405
  Serious: Yes (Other)
  Sender: FDA-Public Use
  Company Number: A0678455A

PATIENT
  Age: 76 Year
  Sex: Male
  Weight: 64.1 kg

DRUGS (10)
  1. COREG [Suspect]
     Dosage: 12.5MG TWICE PER DAY
     Route: 048
     Dates: start: 20020101, end: 20070101
  2. COREG CR [Suspect]
     Dosage: 10MG TWICE PER DAY
     Route: 048
     Dates: start: 20070101
  3. OMEPRAZOLE [Concomitant]
  4. ATACAND [Concomitant]
  5. HYDROCHLOROTHIAZIDE [Concomitant]
  6. DIGITEK [Concomitant]
  7. WARFARIN SODIUM [Concomitant]
  8. LIPITOR [Concomitant]
  9. ALPRAZOLAM [Concomitant]
  10. SANCTURA [Concomitant]

REACTIONS (4)
  - DIZZINESS [None]
  - FATIGUE [None]
  - SOMNOLENCE [None]
  - SYNCOPE [None]
